FAERS Safety Report 8331087-1 (Version None)
Quarter: 2012Q2

REPORT INFORMATION
  Report Type: 
  Country: None (occurrence: None)
  Receive Date: 20120502
  Receipt Date: 20120411
  Transmission Date: 20120825
  Serious: No
  Sender: FDA-Public Use
  Company Number: US-AMGEN-USASP2012023020

PATIENT
  Age: 58 Year
  Sex: Female

DRUGS (1)
  1. ENBREL [Suspect]
     Indication: PSORIATIC ARTHROPATHY
     Dosage: 50 MG, QWK
     Dates: start: 20041123

REACTIONS (14)
  - PAIN [None]
  - ABNORMAL DREAMS [None]
  - INSOMNIA [None]
  - SOMNOLENCE [None]
  - FEELING COLD [None]
  - INGROWING NAIL [None]
  - CYTOMEGALOVIRUS INFECTION [None]
  - PNEUMONIA [None]
  - FALL [None]
  - PSORIATIC ARTHROPATHY [None]
  - TREMOR [None]
  - PYREXIA [None]
  - DIZZINESS [None]
  - CONFUSIONAL STATE [None]
